FAERS Safety Report 10511684 (Version 1)
Quarter: 2014Q4

REPORT INFORMATION
  Report Type: Spontaneous
  Country: US (occurrence: US)
  Receive Date: 20141010
  Receipt Date: 20141010
  Transmission Date: 20150528
  Serious: Yes (Life-Threatening, Hospitalization)
  Sender: FDA-Public Use
  Company Number: US-ASTRAZENECA-2014SE75349

PATIENT
  Age: 22978 Day
  Sex: Female

DRUGS (1)
  1. PULMICORT FLEXHALER [Suspect]
     Active Substance: BUDESONIDE
     Dosage: 90 UG, 1 PUFFS, TWO TIMES A DAY
     Route: 055

REACTIONS (2)
  - Off label use [Unknown]
  - Oedema [Unknown]

NARRATIVE: CASE EVENT DATE: 20140726
